FAERS Safety Report 14247611 (Version 2)
Quarter: 2017Q4

REPORT INFORMATION
  Report Type: Spontaneous
  Country: AU (occurrence: AU)
  Receive Date: 20171204
  Receipt Date: 20171212
  Transmission Date: 20180321
  Serious: Yes (Other)
  Sender: FDA-Public Use
  Company Number: AU-JNJFOC-20171134076

PATIENT
  Age: 61 Year
  Sex: Female
  Weight: 98 kg

DRUGS (1)
  1. REMICADE [Suspect]
     Active Substance: INFLIXIMAB
     Indication: ANKYLOSING SPONDYLITIS
     Route: 042
     Dates: start: 201610, end: 20171103

REACTIONS (3)
  - Lupus-like syndrome [Not Recovered/Not Resolved]
  - Ulcer [Unknown]
  - Pneumonia [Unknown]

NARRATIVE: CASE EVENT DATE: 20171101
